FAERS Safety Report 7675168-4 (Version None)
Quarter: 2011Q3

REPORT INFORMATION
  Report Type: 
  Country: None (occurrence: None)
  Receive Date: 20110810
  Receipt Date: 20110810
  Transmission Date: 20111222
  Serious: Yes (Hospitalization)
  Sender: FDA-Public Use
  Company Number: None

PATIENT
  Sex: Female
  Weight: 66.678 kg

DRUGS (8)
  1. MIRALAX [Concomitant]
  2. HALDOL [Concomitant]
  3. REGLAN [Concomitant]
  4. DILAUDID [Concomitant]
  5. AVASTIN [Concomitant]
  6. FENTANYL-100 [Concomitant]
  7. EVEROLIMUS (RAD001) [Suspect]
  8. COLACE [Concomitant]

REACTIONS (2)
  - URINARY TRACT INFECTION [None]
  - SMALL INTESTINAL OBSTRUCTION [None]
